FAERS Safety Report 9443889 (Version 1)
Quarter: 2013Q3

REPORT INFORMATION
  Report Type: Spontaneous
  Country: US (occurrence: US)
  Receive Date: 20130806
  Receipt Date: 20130806
  Transmission Date: 20140515
  Serious: Yes (Hospitalization)
  Sender: FDA-Public Use
  Company Number: US-AMGEN-USASP2013025103

PATIENT
  Age: 73 Year
  Sex: Female
  Weight: 69.39 kg

DRUGS (10)
  1. ENBREL [Suspect]
     Indication: PRODUCT USED FOR UNKNOWN INDICATION
     Dosage: 50 MG, QWK
     Route: 058
  2. PLAQUENIL                          /00072602/ [Concomitant]
     Dosage: 200 MG, UNK
     Route: 048
  3. AVELOX [Concomitant]
     Dosage: 400 MG, UNK
     Route: 048
  4. ROBITUSSIN D [Concomitant]
     Indication: COUGH
     Dosage: UNK
     Route: 048
  5. ROBITUSSIN D [Concomitant]
     Indication: NASOPHARYNGITIS
  6. VITAMIN D                          /00107901/ [Concomitant]
     Dosage: 50000 UNIT, UNK
     Route: 048
  7. CALCIUM 500+D [Concomitant]
     Dosage: 500 UNK, UNK
     Route: 048
  8. METHOTREXATE [Concomitant]
     Dosage: 2.5 MG, UNK
     Route: 048
  9. PROTONIX [Concomitant]
     Dosage: 20 MG, UNK
     Route: 048
  10. AMARYL [Concomitant]
     Dosage: 1 MG, UNK
     Route: 048

REACTIONS (1)
  - Pneumonia [Unknown]
